FAERS Safety Report 8849777 (Version 2)
Quarter: 2012Q4

REPORT INFORMATION
  Report Type: 
  Country: GB (occurrence: GB)
  Receive Date: 20121019
  Receipt Date: 20121211
  Transmission Date: 20130627
  Serious: No
  Sender: FDA-Public Use
  Company Number: PHFR2012GB005483

PATIENT
  Age: 44 Year
  Sex: Female

DRUGS (3)
  1. CLOZARIL [Suspect]
     Indication: DELUSIONAL DISORDER, UNSPECIFIED TYPE
     Dosage: 300 mg daily
     Route: 048
     Dates: start: 20120828
  2. CLOZARIL [Suspect]
     Dosage: UNK UKN, dose reduced
  3. CEPHALEXIN [Concomitant]

REACTIONS (2)
  - Urinary tract infection [Unknown]
  - Diarrhoea [Recovered/Resolved]
